FAERS Safety Report 19066427 (Version 1)
Quarter: 2021Q1

REPORT INFORMATION
  Report Type: Report from Study
  Country: CA (occurrence: CA)
  Receive Date: 20210328
  Receipt Date: 20210328
  Transmission Date: 20210420
  Serious: Yes (Other)
  Sender: FDA-Public Use
  Company Number: CA-TEVA-2021-CA-1893240

PATIENT
  Age: 40 Year
  Sex: Female

DRUGS (3)
  1. TAMOXIFEN [Concomitant]
     Active Substance: TAMOXIFEN
  2. COPAXONE [Suspect]
     Active Substance: GLATIRAMER ACETATE
     Indication: MULTIPLE SCLEROSIS
     Dates: start: 20200504
  3. MAGENSIUM [Concomitant]

REACTIONS (8)
  - Injection site pain [Unknown]
  - Injection site erythema [Unknown]
  - Fatigue [Unknown]
  - Multiple sclerosis [Unknown]
  - Injection site urticaria [Unknown]
  - Swelling face [Recovering/Resolving]
  - Blepharospasm [Unknown]
  - Food allergy [Recovering/Resolving]

NARRATIVE: CASE EVENT DATE: 20210312
